FAERS Safety Report 5406625-9 (Version None)
Quarter: 2007Q3

REPORT INFORMATION
  Report Type: 
  Country: None (occurrence: None)
  Receive Date: 20070806
  Receipt Date: 20070726
  Transmission Date: 20080115
  Serious: Yes (Hospitalization, Other)
  Sender: FDA-Public Use
  Company Number: FR-GILEAD-2006-0010246

PATIENT
  Sex: Male
  Weight: 110 kg

DRUGS (10)
  1. TRUVADA [Suspect]
     Indication: HIV INFECTION
     Route: 048
     Dates: start: 20060713
  2. KALETRA [Concomitant]
     Indication: HIV INFECTION
     Route: 048
     Dates: start: 20060713
  3. AZADOSE [Concomitant]
     Indication: ANTIBIOTIC PROPHYLAXIS
     Route: 048
     Dates: start: 20060521
  4. PENTACARINAT [Concomitant]
     Indication: PROPHYLAXIS
     Route: 065
     Dates: start: 20060621
  5. SPECIAFOLDINE [Concomitant]
     Indication: PROPHYLAXIS
     Route: 048
     Dates: start: 20060522
  6. ZOLPIDEM TARTRATE [Concomitant]
     Route: 048
     Dates: start: 20070717
  7. FLUVOXAMINE MALEATE [Concomitant]
     Indication: DEPRESSION
     Dates: start: 20070717
  8. ZYPREXA [Concomitant]
  9. IMODIUM [Concomitant]
     Indication: DIARRHOEA
     Route: 048
     Dates: start: 20061201, end: 20070529
  10. SEROPRAM [Concomitant]
     Indication: DEPRESSION
     Route: 048
     Dates: start: 20070717

REACTIONS (4)
  - ANXIETY [None]
  - ANXIETY DISORDER [None]
  - SCHIZOPHRENIA [None]
  - SUICIDAL IDEATION [None]
